FAERS Safety Report 9372500 (Version 1)
Quarter: 2013Q2

REPORT INFORMATION
  Report Type: Spontaneous
  Country: IT (occurrence: None)
  Receive Date: 20130625
  Receipt Date: 20130625
  Transmission Date: 20140414
  Serious: Yes (Other)
  Sender: FDA-Public Use
  Company Number: IT-021775

PATIENT
  Age: 7 Year
  Sex: Female

DRUGS (2)
  1. TIOGUANINE [Suspect]
     Indication: ACUTE MYELOID LEUKAEMIA
     Dosage: 40 MILLIGRAM (40 MILLIGRAM, 1 IN 1 DAYS), ORAL
     Route: 048
     Dates: start: 20101115, end: 20101130
  2. CYTARABINE [Suspect]
     Indication: ACUTE MYELOID LEUKAEMIA
     Dosage: 23 MILLIGRAM (23 MILLIGRAM, 1 IN 1 DAYS), SUBCUTANEOUS
     Route: 058
     Dates: start: 20101123, end: 20101130

REACTIONS (1)
  - Neutropenia [None]
